FAERS Safety Report 25367133 (Version 1)
Quarter: 2025Q2

REPORT INFORMATION
  Report Type: Report from Study
  Country: US (occurrence: US)
  Receive Date: 20250528
  Receipt Date: 20250528
  Transmission Date: 20250716
  Serious: No
  Sender: SUNOVION
  Company Number: US-SUMITOMO PHARMA SWITZERLAND GMBH-2025SPA005600

PATIENT

DRUGS (12)
  1. ORGOVYX [Suspect]
     Active Substance: RELUGOLIX
     Indication: Prostate cancer
     Dosage: 360 MG, SINGLE
     Route: 048
     Dates: start: 20231109, end: 20231109
  2. ORGOVYX [Suspect]
     Active Substance: RELUGOLIX
     Dosage: 120 MG, QD
     Route: 048
     Dates: start: 20231110
  3. ALLOPURINOL [Concomitant]
     Active Substance: ALLOPURINOL
     Route: 065
  4. ASPIRIN [Concomitant]
     Active Substance: ASPIRIN
     Route: 065
  5. ATORVASTATIN [Concomitant]
     Active Substance: ATORVASTATIN
     Route: 065
  6. FUROSEMIDE [Concomitant]
     Active Substance: FUROSEMIDE
     Route: 065
  7. LATANOPROST [Concomitant]
     Active Substance: LATANOPROST
     Route: 047
  8. METOPROLOL SUCCINATE [Concomitant]
     Active Substance: METOPROLOL SUCCINATE
     Route: 065
  9. POTASSIUM CHLORIDE [Concomitant]
     Active Substance: POTASSIUM CHLORIDE
  10. SENNA [Concomitant]
     Active Substance: SENNOSIDES
     Route: 065
  11. TIMOLOL MALEATE [Concomitant]
     Active Substance: TIMOLOL MALEATE
     Route: 047
  12. XTANDI [Concomitant]
     Active Substance: ENZALUTAMIDE
     Route: 065

REACTIONS (1)
  - Fatigue [Unknown]
